FAERS Safety Report 5964844-7 (Version None)
Quarter: 2008Q4

REPORT INFORMATION
  Report Type: 
  Country: None (occurrence: None)
  Receive Date: 20081120
  Receipt Date: 20081106
  Transmission Date: 20090506
  Serious: Yes (Other)
  Sender: FDA-Public Use
  Company Number: 2008096171

PATIENT
  Age: 27 Year
  Sex: Female

DRUGS (1)
  1. FRAGMIN [Suspect]
     Dosage: 2500 I.U. (2500 I.U, 1 IN 1 D), SUBCUTANEOUS
     Route: 058

REACTIONS (5)
  - ABORTION [None]
  - ADMINISTRATION SITE PAIN [None]
  - ADMINISTRATION SITE REACTION [None]
  - BURNING SENSATION [None]
  - DRUG EXPOSURE DURING PREGNANCY [None]
